FAERS Safety Report 13966792 (Version 2)
Quarter: 2018Q1

REPORT INFORMATION
  Report Type: Spontaneous
  Country: FR (occurrence: FR)
  Receive Date: 20170914
  Receipt Date: 20180306
  Transmission Date: 20180508
  Serious: Yes (Hospitalization)
  Sender: FDA-Public Use
  Company Number: FR-ROCHE-1991684

PATIENT
  Age: 57 Year
  Sex: Female
  Weight: 57.6 kg

DRUGS (7)
  1. MIFLASONE [Concomitant]
     Active Substance: BECLOMETHASONE DIPROPIONATE
     Indication: ASTHMA
     Route: 055
  2. XOLAIR [Suspect]
     Active Substance: OMALIZUMAB
     Route: 058
     Dates: start: 20170717, end: 20170717
  3. XOLAIR [Suspect]
     Active Substance: OMALIZUMAB
     Route: 058
     Dates: start: 20170807, end: 20170807
  4. MIFLONIL [Concomitant]
     Active Substance: BUDESONIDE
     Indication: PRODUCT USED FOR UNKNOWN INDICATION
     Route: 065
  5. XOLAIR [Suspect]
     Active Substance: OMALIZUMAB
     Indication: ASTHMA
     Route: 058
     Dates: start: 20170515, end: 20170515
  6. XOLAIR [Suspect]
     Active Substance: OMALIZUMAB
     Route: 058
     Dates: start: 20170712, end: 20170712
  7. FORADIL [Concomitant]
     Active Substance: FORMOTEROL FUMARATE
     Indication: ASTHMA
     Route: 055

REACTIONS (7)
  - Fatigue [Unknown]
  - Dyspnoea [Unknown]
  - Somnolence [Unknown]
  - Balance disorder [Unknown]
  - Dysarthria [Unknown]
  - Ischaemic stroke [Recovered/Resolved with Sequelae]
  - Disturbance in attention [Unknown]

NARRATIVE: CASE EVENT DATE: 201706
